FAERS Safety Report 6096519-0 (Version None)
Quarter: 2009Q1

REPORT INFORMATION
  Report Type: 
  Country: None (occurrence: None)
  Receive Date: 20090227
  Receipt Date: 20090218
  Transmission Date: 20090719
  Serious: Yes (Other)
  Sender: FDA-Public Use
  Company Number: US-SANOFI-SYNTHELABO-A03200900734

PATIENT
  Sex: Male

DRUGS (5)
  1. CHOLESTEROL MEDICATION [Concomitant]
     Indication: BLOOD CHOLESTEROL
     Dosage: UNK
     Route: 065
  2. AMLODIPINE [Concomitant]
     Indication: DRUG USE FOR UNKNOWN INDICATION
     Dosage: UNK
     Route: 065
  3. TRAMADOL HCL [Concomitant]
     Indication: BACK PAIN
     Route: 065
  4. ASPIRIN [Concomitant]
     Route: 048
  5. PLAVIX [Suspect]
     Indication: CAROTID ARTERY STENT INSERTION
     Route: 048
     Dates: start: 20070101

REACTIONS (4)
  - BALANCE DISORDER [None]
  - CAROTID ARTERY OCCLUSION [None]
  - DIZZINESS [None]
  - NECK PAIN [None]
